FAERS Safety Report 8361004-X (Version None)
Quarter: 2012Q2

REPORT INFORMATION
  Report Type: 
  Country: None (occurrence: None)
  Receive Date: 20120515
  Receipt Date: 20120503
  Transmission Date: 20120825
  Serious: Yes (Death, Hospitalization)
  Sender: FDA-Public Use
  Company Number: CO-ROCHE-1041812

PATIENT
  Sex: Female

DRUGS (1)
  1. CELLCEPT [Suspect]
     Indication: RENAL TRANSPLANT
     Route: 048
     Dates: start: 20100802

REACTIONS (5)
  - COLONIC FISTULA [None]
  - BACTERAEMIA [None]
  - INTESTINAL ISCHAEMIA [None]
  - DEATH [None]
  - PERITONITIS [None]
